FAERS Safety Report 7615677-7 (Version None)
Quarter: 2011Q3

REPORT INFORMATION
  Report Type: 
  Country: None (occurrence: None)
  Receive Date: 20110715
  Receipt Date: 20110715
  Transmission Date: 20111222
  Serious: Yes (Other)
  Sender: FDA-Public Use
  Company Number: None

PATIENT
  Age: 65 Year
  Sex: Female
  Weight: 47.6277 kg

DRUGS (1)
  1. ALENDRONATE SODIUM [Suspect]
     Indication: OSTEOPOROSIS
     Dosage: 70MG. (ONE TABLET) ONCE A WEEK PO
     Route: 048
     Dates: start: 20040615, end: 20110710

REACTIONS (4)
  - PRODUCT SHAPE ISSUE [None]
  - FOREIGN BODY [None]
  - OROPHARYNGEAL PAIN [None]
  - PRODUCT COATING ISSUE [None]
